FAERS Safety Report 26045535 (Version 1)
Quarter: 2025Q4

REPORT INFORMATION
  Report Type: Spontaneous
  Country: EU (occurrence: EU)
  Receive Date: 20251114
  Receipt Date: 20251114
  Transmission Date: 20260118
  Serious: Yes (Other)
  Sender: Teyro Labs
  Company Number: EU-TEYRO-2025-TY-000907

PATIENT

DRUGS (4)
  1. CARBOPLATIN [Suspect]
     Active Substance: CARBOPLATIN
     Indication: Small cell lung cancer extensive stage
     Dosage: AUC-5 MG/ML/MIN
     Route: 065
  2. ATEZOLIZUMAB [Suspect]
     Active Substance: ATEZOLIZUMAB
     Indication: Small cell lung cancer extensive stage
     Dosage: EVERY 21 DAYS, FOR 4 TO 6 CYCLES ACCORDING TO INVESTIGATOR CHOICE
     Route: 065
  3. ATEZOLIZUMAB [Suspect]
     Active Substance: ATEZOLIZUMAB
     Dosage: MAINTENANCE EVERY 3 WEEKS
     Route: 065
  4. ETOPOSIDE [Suspect]
     Active Substance: ETOPOSIDE
     Indication: Small cell lung cancer extensive stage
     Dosage: BSA ON DAYS 1-3 OF EACH CYCLE) EVERY 21 DAYS, FOR 4 TO 6 CYCLES ACCORDING TO INVESTIGATOR CHOICE
     Route: 065

REACTIONS (2)
  - Ataxia [Unknown]
  - Off label use [Unknown]
